FAERS Safety Report 17926702 (Version 2)
Quarter: 2020Q3

REPORT INFORMATION
  Report Type: Report from Study
  Country: FR (occurrence: FR)
  Receive Date: 20200623
  Receipt Date: 20200930
  Transmission Date: 20201103
  Serious: Yes (Other)
  Sender: FDA-Public Use
  Company Number: FR-AUROBINDO-AUR-APL-2020-030203

PATIENT
  Age: 42 Year
  Sex: Male

DRUGS (11)
  1. CLARITHROMYCIN. [Suspect]
     Active Substance: CLARITHROMYCIN
     Indication: MYCOBACTERIUM CHELONAE INFECTION
     Dosage: 500 MILLIGRAM, TWO TIMES A DAY
     Route: 048
  2. MYCOPHENOLATE MOFETIL. [Concomitant]
     Active Substance: MYCOPHENOLATE MOFETIL
     Indication: IMMUNOSUPPRESSION
     Dosage: UNK, DAILY
     Route: 065
  3. LINEZOLID. [Interacting]
     Active Substance: LINEZOLID
     Indication: MYCOBACTERIUM CHELONAE INFECTION
     Dosage: 600 MILLIGRAM, TWO TIMES A DAY
     Route: 048
  4. TIGECYCLINE. [Concomitant]
     Active Substance: TIGECYCLINE
     Indication: NODULE
     Dosage: UNK
     Route: 065
  5. CLARITHROMYCIN. [Interacting]
     Active Substance: CLARITHROMYCIN
     Dosage: 500 MILLIGRAM, TWO TIMES A DAY
     Route: 048
  6. CLARITHROMYCIN. [Interacting]
     Active Substance: CLARITHROMYCIN
     Dosage: 250 MILLIGRAM, TWO TIMES A DAY
     Route: 048
  7. LINEZOLID. [Interacting]
     Active Substance: LINEZOLID
     Dosage: 600 MILLIGRAM, FOUR TIMES/DAY
     Route: 048
  8. TIGECYCLINE. [Concomitant]
     Active Substance: TIGECYCLINE
     Indication: MYCOBACTERIUM CHELONAE INFECTION
     Dosage: 100 MILLIGRAM, FOUR TIMES/DAY (4X/DAY)
     Route: 065
  9. CLARITHROMYCIN. [Interacting]
     Active Substance: CLARITHROMYCIN
     Dosage: 500 MILLIGRAM, TWO TIMES A DAY
     Route: 048
  10. PREDNISONE. [Concomitant]
     Active Substance: PREDNISONE
     Indication: IMMUNOSUPPRESSANT DRUG THERAPY
     Dosage: UNK, DAILY
     Route: 065
  11. CICLOSPORIN A [Concomitant]
     Active Substance: CYCLOSPORINE
     Indication: IMMUNOSUPPRESSION
     Dosage: UNK, DAILY
     Route: 065

REACTIONS (8)
  - Drug interaction [Unknown]
  - Thrombocytopenia [Unknown]
  - Myalgia [Unknown]
  - Overdose [Unknown]
  - Arthralgia [Unknown]
  - Dizziness [Unknown]
  - Hypoacusis [Unknown]
  - Tinnitus [Unknown]
